FAERS Safety Report 8858396 (Version 3)
Quarter: 2013Q3

REPORT INFORMATION
  Report Type: Report from Study
  Country: JP (occurrence: JP)
  Receive Date: 20121024
  Receipt Date: 20130701
  Transmission Date: 20140515
  Serious: Yes (Hospitalization, Other)
  Sender: FDA-Public Use
  Company Number: JP-009507513-1210JPN004852

PATIENT
  Age: 60 Year
  Sex: Female
  Weight: 50 kg

DRUGS (19)
  1. PEGINTRON [Suspect]
     Indication: CHRONIC HEPATITIS C
     Dosage: 0.8 MICROGRAM PER KILOGRAM, QW
     Route: 058
     Dates: start: 20120724, end: 20120814
  2. PEGINTRON [Suspect]
     Dosage: 0.8 MICROGRAM PER KILOGRAM, QW
     Route: 058
     Dates: start: 20120829, end: 20120926
  3. PEGINTRON [Suspect]
     Dosage: 1.5 MICROGRAM PER KILOGRAM, UNK
     Route: 058
     Dates: start: 20121003, end: 20121003
  4. PEGINTRON [Suspect]
     Dosage: 0.8 MICROGRAM PER KILOGRAM, UNK
     Route: 058
     Dates: start: 20121010, end: 20121010
  5. PEGINTRON [Suspect]
     Dosage: 1.5 MICROGRAM PER KILOGRAM, UNK
     Route: 058
     Dates: start: 20121017, end: 20121023
  6. PEGINTRON [Suspect]
     Dosage: 0.8 MICROGRAM PER KILOGRAM, UNK
     Route: 058
     Dates: start: 20121024
  7. REBETOL [Suspect]
     Indication: CHRONIC HEPATITIS C
     Dosage: 400 MG, QD
     Route: 048
     Dates: start: 20120724, end: 20120814
  8. REBETOL [Suspect]
     Dosage: 200 MG, QD
     Route: 048
     Dates: start: 20120829, end: 20121009
  9. REBETOL [Suspect]
     Dosage: 200 MG, QD
     Route: 048
     Dates: start: 20121031
  10. TELAVIC [Suspect]
     Indication: CHRONIC HEPATITIS C
     Dosage: 1500 MG, QD
     Route: 048
     Dates: start: 20120724, end: 20120814
  11. TELAVIC [Suspect]
     Dosage: 1500 MG, QD
     Route: 048
     Dates: start: 20120829, end: 20121009
  12. TELAVIC [Suspect]
     Dosage: 1500 MG,QD
     Route: 048
     Dates: start: 20121031, end: 20121212
  13. TELAVIC [Suspect]
     Dosage: 1500 MG,QD
     Route: 048
     Dates: start: 20130109
  14. URSO [Concomitant]
     Indication: CHRONIC HEPATITIS C
     Dosage: 900 MG, QD
     Route: 048
  15. OLMETEC [Concomitant]
     Indication: HYPERTENSION
     Dosage: 20 MG, QD
     Route: 048
  16. LAXOBERON [Concomitant]
     Indication: CONSTIPATION
     Dosage: 7.5 MG, QD
     Route: 048
  17. TAKEPRON [Concomitant]
     Indication: GASTRITIS
     Dosage: 15 MG, QD
     Route: 048
  18. GASMOTIN [Concomitant]
     Indication: GASTRITIS
     Dosage: 15 MG, QD
     Route: 048
  19. FEBURIC [Concomitant]

REACTIONS (2)
  - Blood urea increased [Recovered/Resolved]
  - Anaemia [Not Recovered/Not Resolved]
